FAERS Safety Report 6264576-4 (Version None)
Quarter: 2009Q3

REPORT INFORMATION
  Report Type: 
  Country: None (occurrence: None)
  Receive Date: 20090710
  Receipt Date: 20090702
  Transmission Date: 20100115
  Serious: Yes (Other)
  Sender: FDA-Public Use
  Company Number: PHHY2009BE27025

PATIENT
  Sex: Male

DRUGS (14)
  1. RASILEZ [Suspect]
     Indication: HYPERTENSION
     Dosage: 150 MG, UNK
     Route: 048
     Dates: start: 20090504
  2. COZAAR [Concomitant]
  3. LOSFERRON [Concomitant]
  4. TAMSULOSIN HCL [Concomitant]
  5. DILTIAZEM HCL [Concomitant]
     Dosage: 200 MG, UNK
  6. SIMVASTATIN [Concomitant]
  7. ZYLORIC [Concomitant]
  8. D-CURE [Concomitant]
  9. CALCIUM CARBONATE [Concomitant]
  10. SINTROM [Concomitant]
  11. LASIX [Concomitant]
  12. ARANESP [Concomitant]
  13. ZOLADEX [Concomitant]
  14. LANSOPRAZOLE [Concomitant]

REACTIONS (2)
  - HAEMOGLOBIN DECREASED [None]
  - RENAL FAILURE [None]
